FAERS Safety Report 25003729 (Version 2)
Quarter: 2025Q1

REPORT INFORMATION
  Report Type: Spontaneous
  Country: KR (occurrence: KR)
  Receive Date: 20250224
  Receipt Date: 20250304
  Transmission Date: 20250408
  Serious: No
  Sender: PFIZER
  Company Number: KR-PFIZER INC-PV202500016684

PATIENT
  Age: 11 Year
  Sex: Female

DRUGS (1)
  1. NGENLA [Suspect]
     Active Substance: SOMATROGON-GHLA
     Dosage: 23 MG, WEEKLY
     Route: 058
     Dates: start: 20241211

REACTIONS (2)
  - Injection site pain [Unknown]
  - Intentional product misuse [Unknown]
